FAERS Safety Report 9729284 (Version 1)
Quarter: 2013Q4

REPORT INFORMATION
  Report Type: Spontaneous
  Country: US (occurrence: US)
  Receive Date: 20131204
  Receipt Date: 20131204
  Transmission Date: 20140711
  Serious: Yes (Hospitalization)
  Sender: FDA-Public Use
  Company Number: US-BAYER-2013-147407

PATIENT
  Age: 16 Year
  Sex: Female
  Weight: 110 kg

DRUGS (6)
  1. YAZ [Suspect]
     Indication: ACNE
  2. DIFFERIN [Concomitant]
  3. KLARON [SALICYLIC ACID,SULFUR] [Concomitant]
  4. IBUPROFEN [Concomitant]
     Indication: PAIN
  5. AMPICILLIN [Concomitant]
  6. PREVACID [Concomitant]

REACTIONS (1)
  - Pulmonary embolism [None]
